FAERS Safety Report 5832351-8 (Version None)
Quarter: 2008Q3

REPORT INFORMATION
  Report Type: 
  Country: None (occurrence: None)
  Receive Date: 20080804
  Receipt Date: 20080801
  Transmission Date: 20090109
  Serious: Yes (Hospitalization)
  Sender: FDA-Public Use
  Company Number: D0057635A

PATIENT
  Age: 51 Year
  Sex: Male
  Weight: 84 kg

DRUGS (6)
  1. AVANDAMET [Suspect]
     Indication: DIABETES MELLITUS
     Route: 048
     Dates: start: 20050101, end: 20080616
  2. SIMVASTATIN [Suspect]
     Route: 065
     Dates: end: 20080315
  3. PSORIASIS OINTMENT [Concomitant]
     Indication: PSORIASIS
     Route: 061
  4. NOVONORM [Concomitant]
     Indication: DIABETES MELLITUS
     Route: 048
  5. ARCOXIA [Concomitant]
     Indication: OSTEOCHONDROSIS
     Route: 048
  6. DOXEPIN HCL [Concomitant]
     Dosage: 75MG AT NIGHT
     Route: 048

REACTIONS (1)
  - BLOOD CREATINE PHOSPHOKINASE INCREASED [None]
